FAERS Safety Report 9382270 (Version 1)
Quarter: 2013Q3

REPORT INFORMATION
  Report Type: Spontaneous
  Country: US (occurrence: US)
  Receive Date: 20130703
  Receipt Date: 20130703
  Transmission Date: 20140515
  Serious: Yes (Hospitalization, Other)
  Sender: FDA-Public Use
  Company Number: US-UCBSA-090168

PATIENT
  Sex: Female

DRUGS (2)
  1. VIMPAT [Suspect]
     Dosage: 300 MG
     Route: 042
     Dates: start: 20130615
  2. VIMPAT [Suspect]
     Route: 042
     Dates: start: 2013, end: 2013

REACTIONS (3)
  - Coma hepatic [Recovering/Resolving]
  - Muscle disorder [Unknown]
  - Blood creatine phosphokinase increased [None]
